FAERS Safety Report 10234231 (Version 1)
Quarter: 2014Q2

REPORT INFORMATION
  Report Type: Spontaneous
  Country: US (occurrence: US)
  Receive Date: 20140612
  Receipt Date: 20140612
  Transmission Date: 20141212
  Serious: No
  Sender: FDA-Public Use
  Company Number: US-009507513-1406USA006330

PATIENT
  Age: 28 Year
  Sex: Female
  Weight: 62.59 kg

DRUGS (1)
  1. NUVARING [Suspect]
     Indication: CONTRACEPTION
     Dosage: UNK
     Route: 067
     Dates: end: 20140607

REACTIONS (2)
  - Pain [Recovered/Resolved]
  - Urinary tract infection [Unknown]
